FAERS Safety Report 5070011-4 (Version None)
Quarter: 2006Q3

REPORT INFORMATION
  Report Type: 
  Country: None (occurrence: None)
  Receive Date: 20060803
  Receipt Date: 20060726
  Transmission Date: 20061208
  Serious: Yes (Other)
  Sender: FDA-Public Use
  Company Number: PHEH2006US09566

PATIENT
  Age: 59 Year
  Sex: Female

DRUGS (1)
  1. ENABLEX [Suspect]
     Indication: HYPERTONIC BLADDER
     Dosage: 7.5 MG, QD
     Dates: start: 20060125, end: 20060625

REACTIONS (4)
  - EYELID DISORDER [None]
  - MYASTHENIA GRAVIS [None]
  - RASH [None]
  - SWOLLEN TONGUE [None]
